FAERS Safety Report 5352130-8 (Version None)
Quarter: 2007Q2

REPORT INFORMATION
  Report Type: 
  Country: None (occurrence: None)
  Receive Date: 20070606
  Receipt Date: 20070522
  Transmission Date: 20071010
  Serious: Yes (Life-Threatening, Hospitalization)
  Sender: FDA-Public Use
  Company Number: T200700562

PATIENT
  Age: 65 Year
  Sex: Female
  Weight: 58 kg

DRUGS (9)
  1. OPTIRAY 160 [Suspect]
     Indication: COMPUTERISED TOMOGRAM ABDOMEN
     Dosage: 90 ML, SINGLE, INTRAVENOUS
     Route: 042
     Dates: start: 20070516, end: 20070516
  2. CHLORPHENESIN CARBAMATE (CHLORPHENESIN CARBAMATE) TABLET [Concomitant]
  3. ALFACALCIDOL (ALFACALCIDOL) CAPSULE [Concomitant]
  4. LOSARTAN POTASSIUM (LOSARTAN POTASSIUM) TABLET [Concomitant]
  5. IFENPRODIL TARTRATE (IFENPRODIL TARTRATE) TABLET [Concomitant]
  6. CLOTIAZEPAM (CLOTIAZEPAM) TABLET [Concomitant]
  7. PRAVASTATIN SODIUM (PRAVASTATIN SODIUM) TABLET [Concomitant]
  8. FLUVOXAMINE MALEATE (FLUVOXAMINE MALEATE) TABLET [Concomitant]
  9. COLESTIMIDE TABLET [Concomitant]

REACTIONS (4)
  - ANAPHYLACTIC SHOCK [None]
  - CONTRAST MEDIA REACTION [None]
  - GENERALISED OEDEMA [None]
  - LOSS OF CONSCIOUSNESS [None]
